FAERS Safety Report 8277203-1 (Version None)
Quarter: 2012Q2

REPORT INFORMATION
  Report Type: 
  Country: None (occurrence: None)
  Receive Date: 20120412
  Receipt Date: 20120405
  Transmission Date: 20120825
  Serious: Yes (Hospitalization)
  Sender: FDA-Public Use
  Company Number: US-GLAXOSMITHKLINE-A0794725A

PATIENT
  Age: 64 Year
  Sex: Male
  Weight: 74.1 kg

DRUGS (6)
  1. NORVASC [Concomitant]
  2. ZOCOR [Concomitant]
  3. EPIRIZOLE [Concomitant]
  4. AVANDIA [Suspect]
     Indication: DIABETES MELLITUS
     Dosage: 4MG PER DAY
     Route: 048
     Dates: start: 20070213, end: 20070701
  5. GLYBURIDE AND METFORMIN HYDROCHLORIDE [Concomitant]
  6. TENORMIN [Concomitant]

REACTIONS (2)
  - CORONARY ARTERY OCCLUSION [None]
  - AORTIC STENOSIS [None]
